FAERS Safety Report 19912192 (Version 1)
Quarter: 2021Q4

REPORT INFORMATION
  Report Type: Report from Study
  Country: US (occurrence: US)
  Receive Date: 20211004
  Receipt Date: 20211004
  Transmission Date: 20220303
  Serious: Yes (Hospitalization)
  Sender: FDA-Public Use
  Company Number: US-SA-SAC20210802001169

PATIENT
  Age: 73 Year
  Sex: Male

DRUGS (1)
  1. DUPILUMAB [Suspect]
     Active Substance: DUPILUMAB
     Indication: Dermatitis atopic
     Dosage: 300 MG, QOW
     Route: 058
     Dates: start: 20201007

REACTIONS (4)
  - COVID-19 [Recovering/Resolving]
  - Illness [Recovering/Resolving]
  - Skin disorder [Unknown]
  - Therapeutic response shortened [Unknown]
